FAERS Safety Report 5179746-6 (Version None)
Quarter: 2006Q4

REPORT INFORMATION
  Report Type: 
  Country: None (occurrence: None)
  Receive Date: 20061212
  Receipt Date: 20061129
  Transmission Date: 20070319
  Serious: Yes (Hospitalization)
  Sender: FDA-Public Use
  Company Number: 2006125900

PATIENT
  Age: 97 Year
  Sex: Female
  Weight: 69 kg

DRUGS (6)
  1. LYRICA [Suspect]
     Indication: HYPERTENSION
     Dosage: 150 MG (75 MG, 2 IN 1 D), ORAL
     Route: 048
     Dates: start: 20060214, end: 20060323
  2. ALDACTONE [Suspect]
     Indication: HYPERTENSION
     Dosage: ORAL
     Route: 048
  3. AMLODIPINE [Concomitant]
  4. ACETYLSALICYLIC ACID SRT [Concomitant]
  5. DAFALGAN (PARACETAMOL) [Concomitant]
  6. TRAMADOL HCL [Concomitant]

REACTIONS (6)
  - APHASIA [None]
  - DELIRIUM [None]
  - ENCEPHALOPATHY [None]
  - HEADACHE [None]
  - MALAISE [None]
  - RENAL FAILURE [None]
